FAERS Safety Report 7381680-8 (Version None)
Quarter: 2011Q1

REPORT INFORMATION
  Report Type: 
  Country: None (occurrence: None)
  Receive Date: 20110329
  Receipt Date: 20101001
  Transmission Date: 20110831
  Serious: Yes (Hospitalization, Other)
  Sender: FDA-Public Use
  Company Number: US-BAYER-201022989NA

PATIENT
  Sex: Female
  Weight: 119.73 kg

DRUGS (4)
  1. OCELLA [Suspect]
     Indication: PRODUCT USED FOR UNKNOWN INDICATION
     Dosage: UNK
     Route: 048
     Dates: start: 20081101, end: 20091115
  2. POTASSIUM [POTASSIUM] [Concomitant]
  3. FERROUS SULFATE TAB [Concomitant]
  4. YASMIN [Suspect]
     Indication: PRODUCT USED FOR UNKNOWN INDICATION
     Dosage: UNK
     Route: 048
     Dates: start: 20080801, end: 20091001

REACTIONS (4)
  - GALLBLADDER DISORDER [None]
  - HYPERTENSION [None]
  - CHOLELITHIASIS [None]
  - CHOLECYSTITIS CHRONIC [None]
